FAERS Safety Report 10211480 (Version 2)
Quarter: 2014Q2

REPORT INFORMATION
  Report Type: Spontaneous
  Country: LV (occurrence: None)
  Receive Date: 20140528
  Receipt Date: 20140603
  Transmission Date: 20141212
  Serious: Yes (Other)
  Sender: FDA-Public Use
  Company Number: E2B_7293819

PATIENT
  Age: 3 Year
  Sex: Female

DRUGS (2)
  1. EUTHYROX [Suspect]
     Indication: PRODUCT USED FOR UNKNOWN INDICATION
     Dosage: 1.5 DF (ONCE DAILY IN THE MORNING)
     Route: 048
     Dates: start: 20140217, end: 20140416
  2. VIBROCIL?/00168701/(VIBROCIL /00168701/)(PHENYLEPHRINE, NEOMYCIN SULFATE, DIMETINDENE MALEATE) [Concomitant]

REACTIONS (4)
  - Drug ineffective [None]
  - Blood thyroid stimulating hormone increased [None]
  - Blood thyroid stimulating hormone decreased [None]
  - Nasopharyngitis [None]
